FAERS Safety Report 8818658 (Version 1)
Quarter: 2012Q4

REPORT INFORMATION
  Report Type: 
  Country: IT (occurrence: IT)
  Receive Date: 20121001
  Receipt Date: 20121001
  Transmission Date: 20130627
  Serious: Yes (Other)
  Sender: FDA-Public Use
  Company Number: PHHY2012IT083906

PATIENT
  Age: 89 Year
  Sex: Male

DRUGS (1)
  1. LEVOFLOXACIN [Suspect]
     Indication: STREPTOCOCCAL INFECTION
     Dosage: 500 mg, UNK
     Route: 048
     Dates: start: 20110408, end: 20110411

REACTIONS (1)
  - Muscle strain [Recovered/Resolved]
